FAERS Safety Report 19388210 (Version 1)
Quarter: 2021Q2

REPORT INFORMATION
  Report Type: Spontaneous
  Country: US (occurrence: US)
  Receive Date: 20210607
  Receipt Date: 20210607
  Transmission Date: 20210717
  Serious: Yes (Disabling)
  Sender: FDA-Public Use
  Company Number: None

PATIENT
  Age: 41 Year
  Sex: Female
  Weight: 45 kg

DRUGS (1)
  1. KENALOG?40 [Suspect]
     Active Substance: TRIAMCINOLONE ACETONIDE
     Indication: SEASONAL ALLERGY

REACTIONS (5)
  - Muscle atrophy [None]
  - Injection site muscle atrophy [None]
  - Injection site indentation [None]
  - Injection site atrophy [None]
  - Asthenia [None]

NARRATIVE: CASE EVENT DATE: 20210524
